FAERS Safety Report 17883499 (Version 2)
Quarter: 2020Q3

REPORT INFORMATION
  Report Type: Spontaneous
  Country: US (occurrence: US)
  Receive Date: 20200611
  Receipt Date: 20200918
  Transmission Date: 20201103
  Serious: Yes (Other)
  Sender: FDA-Public Use
  Company Number: US-ASTRAZENECA-2020SE72480

PATIENT
  Age: 21911 Day
  Sex: Female
  Weight: 72.6 kg

DRUGS (85)
  1. BENADRYL [Concomitant]
     Active Substance: DIPHENHYDRAMINE HYDROCHLORIDE
     Indication: MULTIPLE ALLERGIES
  2. DIGOXIN. [Concomitant]
     Active Substance: DIGOXIN
  3. METHYLPREDNISOLONE. [Concomitant]
     Active Substance: METHYLPREDNISOLONE
  4. PREDNISONE. [Concomitant]
     Active Substance: PREDNISONE
  5. MELOXICAM. [Concomitant]
     Active Substance: MELOXICAM
  6. GABAPENTIN. [Concomitant]
     Active Substance: GABAPENTIN
  7. METANX [Concomitant]
     Active Substance: LEVOMEFOLATE CALCIUM\METHYLCOBALAMIN\PYRIDOXAL PHOSPHATE ANHYDROUS
  8. PREVACID 24 HR [Suspect]
     Active Substance: LANSOPRAZOLE
     Indication: GASTROOESOPHAGEAL REFLUX DISEASE
     Route: 065
     Dates: start: 2006, end: 2015
  9. ALKA?SELTZER [Concomitant]
     Active Substance: ANHYDROUS CITRIC ACID\ASPIRIN\SODIUM BICARBONATE
  10. PEPTO?BISMOL [Concomitant]
     Active Substance: BISMUTH SUBSALICYLATE
  11. CARVEDILOL. [Concomitant]
     Active Substance: CARVEDILOL
  12. BYETTA [Concomitant]
     Active Substance: EXENATIDE
  13. LANTUS SOLOSTAR [Concomitant]
     Active Substance: INSULIN GLARGINE
  14. CITALOPRAM [Concomitant]
     Active Substance: CITALOPRAM HYDROBROMIDE
  15. TRAMADOL. [Concomitant]
     Active Substance: TRAMADOL
  16. PHENDIMETRAZINE. [Concomitant]
     Active Substance: PHENDIMETRAZINE TARTRATE
  17. AZITHROMYCIN ANHYDROUS. [Concomitant]
     Active Substance: AZITHROMYCIN ANHYDROUS
  18. PROPANOLOL [Concomitant]
     Active Substance: PROPRANOLOL HYDROCHLORIDE
  19. ROPINROLE [Concomitant]
     Active Substance: ROPINIROLE
  20. DEPAKOTE [Concomitant]
     Active Substance: DIVALPROEX SODIUM
  21. ROLAIDS [Concomitant]
     Active Substance: CALCIUM CARBONATE\MAGNESIUM HYDROXIDE
  22. VICTOZA [Concomitant]
     Active Substance: LIRAGLUTIDE
  23. ONDANSETRON [Concomitant]
     Active Substance: ONDANSETRON
  24. LIDODERM [Concomitant]
     Active Substance: LIDOCAINE
  25. SYNTHROID [Concomitant]
     Active Substance: LEVOTHYROXINE SODIUM
  26. CALCIUM [Concomitant]
     Active Substance: CALCIUM
  27. CALCIUM PYRUVATE [Concomitant]
     Active Substance: CALCIUM PYRUVATE
  28. VITAMIN B COMPLEX [Concomitant]
     Active Substance: CYANOCOBALAMIN\DEXPANTHENOL\NIACINAMIDE\PYRIDOXINE HYDROCHLORIDE\RIBOFLAVIN 5^-PHOSPHATE SODIUM\THIAMINE HYDROCHLORIDE\VITAMIN B COMPLEX
  29. NEXIUM 24HR [Suspect]
     Active Substance: ESOMEPRAZOLE MAGNESIUM
     Indication: GASTROOESOPHAGEAL REFLUX DISEASE
     Route: 048
     Dates: start: 2006, end: 2018
  30. NEXIUM [Suspect]
     Active Substance: ESOMEPRAZOLE MAGNESIUM
     Indication: GASTROOESOPHAGEAL REFLUX DISEASE
     Route: 048
     Dates: start: 2010
  31. FAMOTIDINE. [Concomitant]
     Active Substance: FAMOTIDINE
     Dates: start: 2018
  32. KLOR?CON [Concomitant]
     Active Substance: POTASSIUM CHLORIDE
  33. METFORMIN HCL [Concomitant]
     Active Substance: METFORMIN HYDROCHLORIDE
  34. COLCHICINE. [Concomitant]
     Active Substance: COLCHICINE
  35. SULFAMETHOXAZOLE [Concomitant]
     Active Substance: SULFAMETHOXAZOLE
  36. MECLIZINE [Concomitant]
     Active Substance: MECLIZINE HYDROCHLORIDE
  37. FLEXERIL [Concomitant]
     Active Substance: CYCLOBENZAPRINE HYDROCHLORIDE
  38. CIPRO [Concomitant]
     Active Substance: CIPROFLOXACIN HYDROCHLORIDE
  39. MULTIVITAMINS [Concomitant]
     Active Substance: VITAMINS
  40. ZOSTER [Concomitant]
  41. URIC ACID [Concomitant]
     Active Substance: URIC ACID
  42. PRILOSEC OTC [Suspect]
     Active Substance: OMEPRAZOLE MAGNESIUM
     Indication: GASTROOESOPHAGEAL REFLUX DISEASE
     Route: 048
     Dates: start: 2018, end: 2018
  43. PREVACID 24 HR [Suspect]
     Active Substance: LANSOPRAZOLE
     Indication: GASTROOESOPHAGEAL REFLUX DISEASE
     Route: 065
     Dates: start: 2006, end: 2018
  44. TUMS [Concomitant]
     Active Substance: CALCIUM CARBONATE
  45. MAALOX ANTACID [Concomitant]
     Active Substance: ALUMINUM HYDROXIDE\DIMETHICONE\MAGNESIUM HYDROXIDE
  46. LEXAPRO [Concomitant]
     Active Substance: ESCITALOPRAM OXALATE
  47. INDOMETHACIN. [Concomitant]
     Active Substance: INDOMETHACIN
  48. FLUZONE [Concomitant]
     Active Substance: INFLUENZA A VIRUS A/CALIFORNIA/7/2009 X-179A (H1N1) ANTIGEN (FORMALDEHYDE INACTIVATED)\INFLUENZA A VIRUS A/VICTORIA/210/2009 X-187 (H3N2) ANTIGEN (FORMALDEHYDE INACTIVATED)\INFLUENZA B VIRUS B/BRISBANE/60/2008 ANTIGEN (FORMALDEHYDE INACTIVATED)
  49. CEPHALEXIN. [Concomitant]
     Active Substance: CEPHALEXIN
  50. VITAMIN D3 [Concomitant]
     Active Substance: CHOLECALCIFEROL
  51. NIACIN. [Concomitant]
     Active Substance: NIACIN
  52. VESICARE [Concomitant]
     Active Substance: SOLIFENACIN SUCCINATE
  53. CINNAMON. [Concomitant]
     Active Substance: CINNAMON
  54. ACETAMINOPHEN. [Concomitant]
     Active Substance: ACETAMINOPHEN
     Indication: PAIN
  55. CRESTOR [Concomitant]
     Active Substance: ROSUVASTATIN CALCIUM
  56. ROXICET [Concomitant]
     Active Substance: ACETAMINOPHEN\OXYCODONE HYDROCHLORIDE
  57. HUMULIN NOS [Concomitant]
     Active Substance: INSULIN HUMAN
  58. FINOPTIN [Concomitant]
  59. MACROBID [Concomitant]
     Active Substance: NITROFURANTOIN\NITROFURANTOIN MONOHYDRATE
  60. NEXIUM 24HR [Suspect]
     Active Substance: ESOMEPRAZOLE MAGNESIUM
     Indication: GASTROOESOPHAGEAL REFLUX DISEASE
     Route: 048
     Dates: start: 2015, end: 2017
  61. PRILOSEC OTC [Suspect]
     Active Substance: OMEPRAZOLE MAGNESIUM
     Indication: GASTROOESOPHAGEAL REFLUX DISEASE
     Route: 048
     Dates: start: 2006, end: 2018
  62. PRILOSEC OTC [Suspect]
     Active Substance: OMEPRAZOLE MAGNESIUM
     Indication: GASTROOESOPHAGEAL REFLUX DISEASE
     Route: 048
     Dates: start: 2018
  63. LUNESTA [Concomitant]
     Active Substance: ESZOPICLONE
  64. ZOLPIDEM [Concomitant]
     Active Substance: ZOLPIDEM TARTRATE
  65. HYDROCODONE?ACETAMINOPHEN [Concomitant]
     Active Substance: ACETAMINOPHEN\HYDROCODONE
  66. TRICOR [Concomitant]
     Active Substance: FENOFIBRATE
  67. PROMETHAZINE [Concomitant]
     Active Substance: PROMETHAZINE HYDROCHLORIDE
  68. ZOLPIDEM TARTRATE. [Concomitant]
     Active Substance: ZOLPIDEM TARTRATE
  69. AMOX TR?K CLAV [Concomitant]
  70. PRAVASTATIN. [Concomitant]
     Active Substance: PRAVASTATIN
  71. FISH OIL [Concomitant]
     Active Substance: FISH OIL
  72. PREVACID 24 HR [Suspect]
     Active Substance: LANSOPRAZOLE
     Indication: GASTROOESOPHAGEAL REFLUX DISEASE
     Route: 065
     Dates: start: 2008, end: 2015
  73. MILK OF MAGNESIA [Concomitant]
     Active Substance: MAGNESIUM HYDROXIDE
  74. AVAPRO [Concomitant]
     Active Substance: IRBESARTAN
  75. GLIPIZIDE. [Concomitant]
     Active Substance: GLIPIZIDE
  76. AMITRIPTYLINE [Concomitant]
     Active Substance: AMITRIPTYLINE
  77. GLUCAGON. [Concomitant]
     Active Substance: GLUCAGON
  78. ULORIC [Concomitant]
     Active Substance: FEBUXOSTAT
  79. POLYETHYLENE GLYCOL [Concomitant]
     Active Substance: POLYETHYLENE GLYCOLS
  80. BENZONATATE. [Concomitant]
     Active Substance: BENZONATATE
  81. LYRICA [Concomitant]
     Active Substance: PREGABALIN
  82. TOBRAMYCIN. [Concomitant]
     Active Substance: TOBRAMYCIN
  83. FLEXPEN [Concomitant]
     Active Substance: UNSPECIFIED INGREDIENT
  84. SOMA [Concomitant]
     Active Substance: CARISOPRODOL
  85. ELAVIL [Concomitant]
     Active Substance: AMITRIPTYLINE HYDROCHLORIDE

REACTIONS (2)
  - Chronic kidney disease [Not Recovered/Not Resolved]
  - Renal failure [Unknown]

NARRATIVE: CASE EVENT DATE: 20120621
